FAERS Safety Report 6286519-X (Version None)
Quarter: 2009Q4

REPORT INFORMATION
  Report Type: 
  Country: None (occurrence: None)
  Receive Date: 20090724
  Receipt Date: 20090716
  Transmission Date: 20100525
  Serious: Yes (Death)
  Sender: FDA-Public Use
  Company Number: GXKR2009S107251

PATIENT
  Age: 83 Year
  Sex: Male

DRUGS (4)
  1. LEKADOL (NGX) (PARACETAMOL) [Suspect]
     Indication: SKIN ULCER
  2. ZALDIAR (PARACETAMOL, TRAMADOL HYDROCHLORIDE) [Suspect]
     Indication: SKIN ULCER
  3. PERINIDOPRIL (PERINDOPRIL) [Concomitant]
  4. INDAPAMIDE [Concomitant]

REACTIONS (1)
  - ACUTE HEPATIC FAILURE [None]
